FAERS Safety Report 25388288 (Version 2)
Quarter: 2025Q4

REPORT INFORMATION
  Report Type: Report from Study
  Country: EU (occurrence: EU)
  Receive Date: 20250603
  Receipt Date: 20251017
  Transmission Date: 20260117
  Serious: Yes (Hospitalization, Other)
  Sender: ACCORD
  Company Number: None

PATIENT
  Age: 83 Year
  Sex: Female

DRUGS (11)
  1. SERTRALINE [Suspect]
     Active Substance: SERTRALINE HYDROCHLORIDE
     Indication: Product used for unknown indication
     Dosage: STRENGTH: 50 MG, 1 TABLET / 24 H - VIA ORALLY, POOR ADHERENCE, 30 TABLETS
     Dates: start: 20250117, end: 20250414
  2. PREGABALIN [Suspect]
     Active Substance: PREGABALIN
     Indication: Product used for unknown indication
     Dosage: 1 CAPSULE / 12 H - VIA ORALLY, STRENGTH: 50 MG, 56 CAPSULES
     Dates: start: 20241218, end: 20250416
  3. INDAPAMIDE [Suspect]
     Active Substance: INDAPAMIDE
     Indication: Hypertension
     Dosage: 1 TABLET / 24 H, VIA ORALLY, STRENGTH: 1.5 MG, 30 TABLETS MODIFIED-RELEASE
     Dates: start: 20150110, end: 20250414
  4. MIRTAZAPINE [Suspect]
     Active Substance: MIRTAZAPINE
     Indication: Product used for unknown indication
     Dosage: STRENGTH: 15 MG, 0.5 TABLET / 24 H - VIA ORALLY, POOR ADHERENCE, 30 TABLETS
     Dates: start: 20250220, end: 20250414
  5. LEVOFLOXACIN [Concomitant]
     Active Substance: LEVOFLOXACIN
     Indication: Urinary tract infection
     Dosage: STRENGTH: 500 MG, 14 TABLET, 1 TABLET / 12 H - VIA ORALLY
     Dates: start: 20250409, end: 20250416
  6. METOCLOPRAMIDE [Concomitant]
     Active Substance: METOCLOPRAMIDE
     Dosage: STRENGTH: 10 MG, 1 TABLET / 8 H - VIA ORALLY, 30 TABLETS
     Dates: start: 20250407, end: 20250416
  7. BROMAZEPAM [Concomitant]
     Active Substance: BROMAZEPAM
     Indication: Insomnia
     Dosage: STRENGTH: 1.5 MG, 1 CAPSULE / 24 H - VIA ORALLY, IF INSOMNIA, 30 CAPSULES
     Dates: start: 20240221, end: 20250501
  8. DUPHALAC [Concomitant]
     Active Substance: LACTULOSE
     Dosage: STRENGTH: 10 GM, 1 SACHET/8 H, 50 STICKS
     Dates: start: 20250324
  9. FAMOTIDINE [Concomitant]
     Active Substance: FAMOTIDINE
     Dosage: STRENGTH: 20 MG, 1 TABLET / 24 H - VIA ORALLY, 28 TABLETS
     Dates: start: 20220618
  10. SOLIFENACIN [Concomitant]
     Active Substance: SOLIFENACIN
     Dosage: STRENGTH: 5 MG, 1 TABLET / 24 H - VIA ORALLY, 30 TABLET
     Dates: start: 20241219
  11. TAMSULOSIN [Concomitant]
     Active Substance: TAMSULOSIN
     Indication: Urinary retention
     Dosage: STRENGTH: 0.4 MG, 1 TABLET / 24 H - VIA ORALLY, 30 MODIFIED-RELEASE TABLETS
     Dates: start: 20241211

REACTIONS (2)
  - Hyponatraemia [Recovered/Resolved]
  - Hypokalaemia [Recovered/Resolved]

NARRATIVE: CASE EVENT DATE: 20250414
